FAERS Safety Report 8615323-X (Version None)
Quarter: 2012Q3

REPORT INFORMATION
  Report Type: 
  Country: None (occurrence: None)
  Receive Date: 20120823
  Receipt Date: 20120823
  Transmission Date: 20120928
  Serious: Yes (Hospitalization)
  Sender: FDA-Public Use
  Company Number: SG-BAYER-2012-086833

PATIENT
  Age: 70 Year
  Sex: Male

DRUGS (3)
  1. LOSARTAN POTASSIUM [Suspect]
  2. OMEPRAZOLE (PRISOLEC) [Suspect]
  3. ASPIRIN [Suspect]

REACTIONS (1)
  - DERMATITIS EXFOLIATIVE [None]
